FAERS Safety Report 24789901 (Version 2)
Quarter: 2025Q1

REPORT INFORMATION
  Report Type: Report from Study
  Country: US (occurrence: US)
  Receive Date: 20241230
  Receipt Date: 20250117
  Transmission Date: 20250408
  Serious: Yes (Hospitalization, Other)
  Sender: XERIS PHARMACEUTICALS
  Company Number: US-BRIAN CONNER SVP QUALITY AND CHIEF COMPLIANCE OFFICER-2024XER00605

PATIENT
  Sex: Female

DRUGS (2)
  1. RECORLEV [Suspect]
     Active Substance: LEVOKETOCONAZOLE
     Indication: Cushing^s syndrome
     Dosage: 1 TABLET (150 MG), 2X/DAY
     Route: 048
     Dates: start: 20240909
  2. RECORLEV [Suspect]
     Active Substance: LEVOKETOCONAZOLE
     Dosage: 2 TABLET (300 MG), 2X/DAY
     Route: 048
     Dates: start: 20241105, end: 2024

REACTIONS (8)
  - Asthenia [Not Recovered/Not Resolved]
  - Pericardial effusion [Not Recovered/Not Resolved]
  - Kidney infection [Not Recovered/Not Resolved]
  - Cardiac failure congestive [Recovering/Resolving]
  - Diarrhoea [Not Recovered/Not Resolved]
  - Cortisol increased [Not Recovered/Not Resolved]
  - Incontinence [Not Recovered/Not Resolved]
  - Dizziness [Not Recovered/Not Resolved]
